FAERS Safety Report 24050741 (Version 2)
Quarter: 2024Q3

REPORT INFORMATION
  Report Type: Spontaneous
  Country: US (occurrence: US)
  Receive Date: 20240704
  Receipt Date: 20240805
  Transmission Date: 20241017
  Serious: No
  Sender: PFIZER
  Company Number: US-PFIZER INC-202400205820

PATIENT
  Age: 80 Year
  Sex: Female
  Weight: 61.224 kg

DRUGS (1)
  1. PREMARIN [Suspect]
     Active Substance: ESTROGENS, CONJUGATED
     Dosage: 1.25 MG

REACTIONS (6)
  - Cold sweat [Unknown]
  - Night sweats [Unknown]
  - Acne [Unknown]
  - Vulvovaginal dryness [Unknown]
  - Crying [Unknown]
  - Hot flush [Unknown]
